FAERS Safety Report 7148945-6 (Version None)
Quarter: 2010Q4

REPORT INFORMATION
  Report Type: 
  Country: None (occurrence: None)
  Receive Date: 20101209
  Receipt Date: 20101201
  Transmission Date: 20110411
  Serious: Yes (Other)
  Sender: FDA-Public Use
  Company Number: B0681216A

PATIENT
  Age: 58 Year
  Sex: Female

DRUGS (11)
  1. CLENIL MODULITE [Suspect]
     Route: 055
  2. SUMATRIPTAN SUCCINATE [Concomitant]
  3. CO-CODAMOL [Concomitant]
  4. SIMVASTATIN [Concomitant]
  5. CANDESARTAN [Concomitant]
  6. VENLAFAXINE [Concomitant]
  7. IBUPROFEN [Concomitant]
  8. OVESTIN [Concomitant]
  9. OMEPRAZOLE [Concomitant]
  10. VENTOLIN [Concomitant]
  11. RHINOCORT [Concomitant]

REACTIONS (2)
  - BLOOD BLISTER [None]
  - OROPHARYNGEAL PAIN [None]
